FAERS Safety Report 18280666 (Version 5)
Quarter: 2020Q4

REPORT INFORMATION
  Report Type: Spontaneous
  Country: US (occurrence: US)
  Receive Date: 20200918
  Receipt Date: 20201120
  Transmission Date: 20210113
  Serious: Yes (Other)
  Sender: FDA-Public Use
  Company Number: US-PFIZER INC-2020360572

PATIENT
  Age: 2 Year
  Sex: Male

DRUGS (2)
  1. BUSULFAN. [Suspect]
     Active Substance: BUSULFAN
     Dosage: UNK
     Dates: start: 20200309
  2. MELPHALAN. [Suspect]
     Active Substance: MELPHALAN
     Dosage: UNK
     Dates: start: 20200309

REACTIONS (2)
  - Thrombocytopenia [Unknown]
  - Clostridium difficile colitis [Unknown]

NARRATIVE: CASE EVENT DATE: 202004
